FAERS Safety Report 14543802 (Version 2)
Quarter: 2018Q2

REPORT INFORMATION
  Report Type: Report from Study
  Country: BR (occurrence: BR)
  Receive Date: 20180216
  Receipt Date: 20180429
  Transmission Date: 20180711
  Serious: Yes (Other)
  Sender: FDA-Public Use
  Company Number: BR-ELI_LILLY_AND_COMPANY-BR201802002617

PATIENT
  Age: 67 Year
  Sex: Female

DRUGS (1)
  1. TERIPARATIDE [Suspect]
     Active Substance: TERIPARATIDE
     Indication: PRODUCT USED FOR UNKNOWN INDICATION
     Dosage: UNK, UNKNOWN
     Route: 065
     Dates: start: 201706

REACTIONS (5)
  - Asthenia [Unknown]
  - Vomiting [Unknown]
  - Diverticulitis [Recovering/Resolving]
  - Anaemia [Not Recovered/Not Resolved]
  - Lactose intolerance [Unknown]

NARRATIVE: CASE EVENT DATE: 201711
